FAERS Safety Report 19485049 (Version 2)
Quarter: 2021Q3

REPORT INFORMATION
  Report Type: Spontaneous
  Country: ES (occurrence: ES)
  Receive Date: 20210702
  Receipt Date: 20210907
  Transmission Date: 20211014
  Serious: Yes (Other)
  Sender: FDA-Public Use
  Company Number: ES-AUROBINDO-AUR-APL-2021-028019

PATIENT
  Age: 75 Year
  Sex: Male
  Weight: 69.5 kg

DRUGS (5)
  1. REPAGLINIDE. [Suspect]
     Active Substance: REPAGLINIDE
     Indication: BLOOD GLUCOSE FLUCTUATION
  2. INSULIN GLARGINE [Suspect]
     Active Substance: INSULIN GLARGINE
     Dosage: 42 INTERNATIONAL UNIT, ONCE A DAY
     Route: 058
  3. REPAGLINIDE. [Suspect]
     Active Substance: REPAGLINIDE
     Indication: TYPE 2 DIABETES MELLITUS
     Dosage: 1 DOSAGE FORM, 3 TIMES A DAY, 1?1?1 BEFORE MEALS
     Route: 065
     Dates: start: 202105
  4. REPAGLINIDE. [Suspect]
     Active Substance: REPAGLINIDE
     Indication: BLOOD GLUCOSE INCREASED
  5. INSULIN GLARGINE [Suspect]
     Active Substance: INSULIN GLARGINE
     Indication: TYPE 2 DIABETES MELLITUS
     Dosage: 40 INTERNATIONAL UNIT, ONCE A DAY
     Route: 058
     Dates: start: 201905

REACTIONS (5)
  - Drug ineffective [Unknown]
  - Stress [Recovering/Resolving]
  - Blood glucose increased [Recovering/Resolving]
  - Intentional product misuse [Unknown]
  - Blood glucose fluctuation [Recovering/Resolving]

NARRATIVE: CASE EVENT DATE: 202104
